FAERS Safety Report 8375997-8 (Version None)
Quarter: 2012Q2

REPORT INFORMATION
  Report Type: 
  Country: None (occurrence: None)
  Receive Date: 20120522
  Receipt Date: 20120514
  Transmission Date: 20120825
  Serious: Yes (Death, Other)
  Sender: FDA-Public Use
  Company Number: PH-CELGENEUS-128-21880-12051616

PATIENT
  Sex: Female

DRUGS (1)
  1. REVLIMID [Suspect]
     Indication: MYELOPROLIFERATIVE DISORDER
     Route: 048

REACTIONS (6)
  - MULTI-ORGAN FAILURE [None]
  - ABDOMINAL INFECTION [None]
  - APPENDICITIS PERFORATED [None]
  - PLEURAL EFFUSION [None]
  - ACUTE LEUKAEMIA [None]
  - RENAL FAILURE ACUTE [None]
